FAERS Safety Report 4964579-3 (Version None)
Quarter: 2006Q2

REPORT INFORMATION
  Report Type: 
  Country: None (occurrence: None)
  Receive Date: 20060406
  Receipt Date: 20060323
  Transmission Date: 20061013
  Serious: Yes (Other)
  Sender: FDA-Public Use
  Company Number: US-ROCHE-441812

PATIENT
  Age: 53 Year
  Sex: Male
  Weight: 81.6 kg

DRUGS (2)
  1. PEGASYS [Suspect]
     Indication: HEPATITIS C
     Route: 058
     Dates: start: 20020615, end: 20020615
  2. RIBAVIRIN [Suspect]
     Indication: HEPATITIS C
     Route: 048
     Dates: start: 20020615, end: 20020615

REACTIONS (3)
  - GENERALISED OEDEMA [None]
  - PERICARDIAL EFFUSION [None]
  - PULMONARY VALVE STENOSIS [None]
